FAERS Safety Report 9747751 (Version 2)
Quarter: 2015Q4

REPORT INFORMATION
  Report Type: Report from Study
  Country: US (occurrence: US)
  Receive Date: 20131212
  Receipt Date: 20151102
  Transmission Date: 20160305
  Serious: Yes (Hospitalization, Other)
  Sender: FDA-Public Use
  Company Number: US-ROCHE-1313805

PATIENT
  Age: 54 Year
  Sex: Male

DRUGS (15)
  1. DECADRON [Concomitant]
     Active Substance: DEXAMETHASONE
     Route: 042
  2. HEPARIN [Concomitant]
     Active Substance: HEPARIN SODIUM
     Dosage: NS
     Route: 065
  3. RITUXAN [Suspect]
     Active Substance: RITUXIMAB
     Indication: LYMPHOMA
     Dosage: IVPB CYCLE 2 DAY 1
     Route: 042
     Dates: start: 20131118
  4. KYTRIL [Suspect]
     Active Substance: GRANISETRON HYDROCHLORIDE
     Indication: PREMEDICATION
     Route: 065
  5. BENADRYL [Concomitant]
     Active Substance: DIPHENHYDRAMINE HYDROCHLORIDE
     Route: 042
  6. VINCRISTINE [Concomitant]
     Active Substance: VINCRISTINE
     Route: 040
  7. RITUXAN [Suspect]
     Active Substance: RITUXIMAB
     Dosage: IVPB CYCLE 3 DAY 1
     Route: 042
     Dates: start: 20131202
  8. RITUXAN [Suspect]
     Active Substance: RITUXIMAB
     Route: 065
     Dates: start: 20130814
  9. KYTRIL [Suspect]
     Active Substance: GRANISETRON HYDROCHLORIDE
     Route: 065
  10. TYLENOL [Concomitant]
     Active Substance: ACETAMINOPHEN
     Route: 048
  11. VINCRISTINE [Concomitant]
     Active Substance: VINCRISTINE
     Route: 042
  12. RITUXAN [Suspect]
     Active Substance: RITUXIMAB
     Route: 042
  13. CYTOXAN [Concomitant]
     Active Substance: CYCLOPHOSPHAMIDE
     Dosage: IN 250ML NS
     Route: 042
  14. OXALIPLATIN. [Concomitant]
     Active Substance: OXALIPLATIN
  15. PREDNISONE. [Concomitant]
     Active Substance: PREDNISONE
     Route: 048

REACTIONS (8)
  - Blood creatinine increased [Unknown]
  - Urinary tract infection [Unknown]
  - Renal impairment [Unknown]
  - Haematocrit abnormal [Unknown]
  - Culture urine positive [Unknown]
  - Haemoglobin abnormal [Unknown]
  - Lower extremity mass [Unknown]
  - Pyrexia [Unknown]

NARRATIVE: CASE EVENT DATE: 20130814
